FAERS Safety Report 5506447-4 (Version None)
Quarter: 2007Q4

REPORT INFORMATION
  Report Type: 
  Country: None (occurrence: None)
  Receive Date: 20071101
  Receipt Date: 20071019
  Transmission Date: 20080405
  Serious: Yes (Hospitalization)
  Sender: FDA-Public Use
  Company Number: E3810-01340-SPO-PR

PATIENT
  Age: 57 Year
  Sex: Female

DRUGS (9)
  1. RABEPRAZOLE SODIUM [Suspect]
     Dosage: ORAL
     Route: 048
     Dates: end: 20070911
  2. REMICADE [Suspect]
     Indication: CROHN'S DISEASE
     Dosage: 6 MG/KG,
     Dates: start: 20070201, end: 20070903
  3. REMICADE [Suspect]
     Indication: CROHN'S DISEASE
     Dosage: 6 MG/KG,
     Dates: start: 20070904, end: 20070907
  4. LODOZ (BISELECT) [Suspect]
  5. ATARAX [Suspect]
  6. ZOLPIDEM TARTRATE [Suspect]
  7. LOVENOX [Concomitant]
  8. AUGMENTIN '125' [Concomitant]
  9. SOLU-MEDROL [Concomitant]

REACTIONS (12)
  - COAGULOPATHY [None]
  - DISEASE RECURRENCE [None]
  - GASTROINTESTINAL DISORDER [None]
  - INFLAMMATION [None]
  - LEUKOPENIA [None]
  - NEUTROPENIA [None]
  - PROTHROMBIN TIME SHORTENED [None]
  - PYREXIA [None]
  - RECTAL ABSCESS [None]
  - TACHYCARDIA [None]
  - THROMBOCYTOPENIA [None]
  - UROSEPSIS [None]
